FAERS Safety Report 4454396-5 (Version None)
Quarter: 2004Q3

REPORT INFORMATION
  Report Type: 
  Country: None (occurrence: None)
  Receive Date: 20040921
  Receipt Date: 20040909
  Transmission Date: 20050211
  Serious: Yes (Hospitalization)
  Sender: FDA-Public Use
  Company Number: GB-JNJFOC-20040902872

PATIENT
  Sex: Female

DRUGS (3)
  1. REMICADE [Suspect]
     Indication: RHEUMATOID ARTHRITIS
     Route: 042
  2. ALENDRONATE SODIUM [Concomitant]
     Route: 065
  3. FOLIC ACID [Concomitant]
     Route: 065

REACTIONS (3)
  - SCLERITIS [None]
  - SKIN ULCER [None]
  - VASCULITIS [None]
